FAERS Safety Report 14263595 (Version 2)
Quarter: 2018Q1

REPORT INFORMATION
  Report Type: Report from Study
  Country: ES (occurrence: ES)
  Receive Date: 20171208
  Receipt Date: 20180110
  Transmission Date: 20180508
  Serious: Yes (Death, Other)
  Sender: FDA-Public Use
  Company Number: ES-ROCHE-2031807

PATIENT
  Age: 69 Year

DRUGS (10)
  1. NIVOLUMAB [Suspect]
     Active Substance: NIVOLUMAB
     Indication: PRODUCT USED FOR UNKNOWN INDICATION
     Dosage: 26-FEB-2016 1ST CYCLE; 11-APR-2016 4 TH CYCLE;21-NOV-2016 20TH CYCLE
     Route: 065
     Dates: start: 20161121
  2. NIVOLUMAB [Suspect]
     Active Substance: NIVOLUMAB
     Indication: BLADDER CANCER
     Route: 065
     Dates: start: 201703
  3. NIVOLUMAB [Suspect]
     Active Substance: NIVOLUMAB
     Dosage: 1ST CYCLE
     Route: 065
     Dates: start: 20160226
  4. TAXOL [Suspect]
     Active Substance: PACLITAXEL
     Indication: TRANSITIONAL CELL CARCINOMA
     Route: 065
  5. OPDIVO [Suspect]
     Active Substance: NIVOLUMAB
     Dosage: 20 TH CYCLE
     Route: 065
     Dates: start: 20161121
  6. ATEZOLIZUMAB. [Suspect]
     Active Substance: ATEZOLIZUMAB
     Indication: TRANSITIONAL CELL CARCINOMA
     Route: 065
     Dates: start: 20170220
  7. OPDIVO [Suspect]
     Active Substance: NIVOLUMAB
     Indication: BLADDER CANCER
     Dosage: 3 MG/KG, Q2WK?10 MG/ML
     Route: 065
     Dates: start: 20160226
  8. OPDIVO [Suspect]
     Active Substance: NIVOLUMAB
     Dosage: 4 TH CYCLE
     Route: 065
     Dates: start: 20160411
  9. NIVOLUMAB [Suspect]
     Active Substance: NIVOLUMAB
     Route: 065
     Dates: start: 20160411
  10. NIVOLUMAB [Suspect]
     Active Substance: NIVOLUMAB
     Route: 065

REACTIONS (9)
  - Toxicity to various agents [Unknown]
  - Pulmonary mass [Unknown]
  - Paracentesis [Unknown]
  - Death [Fatal]
  - Disease progression [Unknown]
  - Retroperitoneal lymphadenopathy [Unknown]
  - General physical health deterioration [Unknown]
  - Ascites [Unknown]
  - Asthenia [Unknown]

NARRATIVE: CASE EVENT DATE: 201705
